FAERS Safety Report 20217606 (Version 1)
Quarter: 2021Q4

REPORT INFORMATION
  Report Type: Spontaneous
  Country: NL (occurrence: NL)
  Receive Date: 20211222
  Receipt Date: 20211222
  Transmission Date: 20220303
  Serious: Yes (Other)
  Sender: FDA-Public Use
  Company Number: None

PATIENT
  Age: 41 Year
  Sex: Female
  Weight: 80 kg

DRUGS (5)
  1. NALTREXONE [Suspect]
     Active Substance: NALTREXONE
     Indication: Alcohol abuse
     Dosage: 0.5 TABLET (IE 25MG); 25 MG; NALTREXON TABLET COATED 50MG / BRAND NAME NOT SPECIFIED
     Dates: start: 20211110, end: 20211111
  2. MELATONIN [Concomitant]
     Active Substance: MELATONIN
     Dosage: 5 MG; THERAPY START AND END DATE: ASKU; MELATONIN TABLET 5MG / VALDISPERT MELATONIN TABLET 5MG
  3. FLUOXETINE [Concomitant]
     Active Substance: FLUOXETINE HYDROCHLORIDE
     Dosage: THERAPY START AND END DATE: ASKU; FLUOXETINE TABLET BACKUP / BRAND NAME NOT SPECIFIED
  4. THIAMINE [Concomitant]
     Active Substance: THIAMINE
     Dosage: 25 MG; THERAPY START AND END DATE: ASKU; THIAMINE TABLET 25MG / BRAND NAME NOT SPECIFIED
  5. ECHINACEA EXTRACT [Concomitant]
     Active Substance: ECHINACEA EXTRACT
     Dosage: THERAPY START AND END DATE: ASKU; ECHINACEA EXTRACT TABLET / BRAND NAME NOT SPECIFIED

REACTIONS (3)
  - Hypovolaemic shock [Recovered/Resolved]
  - Vomiting [Recovered/Resolved]
  - Diarrhoea [Recovered/Resolved]

NARRATIVE: CASE EVENT DATE: 20211110
